FAERS Safety Report 9228809 (Version 1)
Quarter: 2013Q2

REPORT INFORMATION
  Report Type: Spontaneous
  Country: US (occurrence: US)
  Receive Date: 20130412
  Receipt Date: 20130412
  Transmission Date: 20140414
  Serious: No
  Sender: FDA-Public Use
  Company Number: US-BAYER-2013-046199

PATIENT
  Age: 77 Year
  Sex: Male
  Weight: 94.33 kg

DRUGS (5)
  1. ALEVE TABLET [Suspect]
     Indication: ARTHRITIS
     Dosage: 2 DF, QD
     Route: 048
     Dates: start: 201003
  2. CALCIUM [Concomitant]
  3. VITAMIN D [Concomitant]
  4. VITAMIN B [Concomitant]
  5. MULTI VITAMIN [Concomitant]

REACTIONS (1)
  - Incorrect drug administration duration [None]
